FAERS Safety Report 22072883 (Version 2)
Quarter: 2023Q2

REPORT INFORMATION
  Report Type: Report from Study
  Country: NL (occurrence: NL)
  Receive Date: 20230308
  Receipt Date: 20230406
  Transmission Date: 20230722
  Serious: Yes (Death, Other)
  Sender: FDA-Public Use
  Company Number: NL-Ipsen Biopharmaceuticals, Inc.-2023-05412

PATIENT
  Age: 76 Year
  Sex: Female

DRUGS (1)
  1. LANREOTIDE ACETATE [Suspect]
     Active Substance: LANREOTIDE ACETATE
     Indication: Product used for unknown indication
     Dosage: 1.00 X PER 28 DAYS
     Route: 058
     Dates: start: 20220401

REACTIONS (1)
  - Death [Fatal]
